FAERS Safety Report 22176189 (Version 1)
Quarter: 2023Q2

REPORT INFORMATION
  Report Type: Spontaneous
  Country: US (occurrence: None)
  Receive Date: 20230404
  Receipt Date: 20230404
  Transmission Date: 20230722
  Serious: Yes (Hospitalization, Other)
  Sender: FDA-Public Use
  Company Number: None

PATIENT
  Age: 59 Year
  Sex: Male
  Weight: 87.75 kg

DRUGS (8)
  1. CARBIDOPA AND LEVODOPA [Suspect]
     Active Substance: CARBIDOPA\LEVODOPA
     Indication: Parkinsonism
     Dosage: OTHER QUANTITY : 2 TABLET(S);?FREQUENCY : TWICE A DAY;?
     Route: 048
     Dates: start: 20230313, end: 20230331
  2. LINZESS [Concomitant]
     Active Substance: LINACLOTIDE
  3. PRAVASTATIN [Concomitant]
     Active Substance: PRAVASTATIN
  4. ALPRAZOLAM [Concomitant]
     Active Substance: ALPRAZOLAM
  5. DICLOFENAC [Concomitant]
     Active Substance: DICLOFENAC
  6. TYLENOL [Concomitant]
     Active Substance: ACETAMINOPHEN
  7. ADVIL [Concomitant]
     Active Substance: IBUPROFEN
  8. CLARITIN-D NOS [Concomitant]
     Active Substance: LORATADINE\PSEUDOEPHEDRINE SULFATE

REACTIONS (8)
  - Feeling abnormal [None]
  - Asthenia [None]
  - Flushing [None]
  - Feeling hot [None]
  - Confusional state [None]
  - Cerebrovascular accident [None]
  - Fall [None]
  - Dehydration [None]

NARRATIVE: CASE EVENT DATE: 20230331
